FAERS Safety Report 12765955 (Version 1)
Quarter: 2016Q3

REPORT INFORMATION
  Report Type: Report from Study
  Country: TR (occurrence: TR)
  Receive Date: 20160921
  Receipt Date: 20160921
  Transmission Date: 20161109
  Serious: Yes (Life-Threatening, Other)
  Sender: FDA-Public Use
  Company Number: TR-GLAXOSMITHKLINE-TR2016136685

PATIENT
  Age: 8 Year
  Sex: Male

DRUGS (2)
  1. CEFUROXIME. [Suspect]
     Active Substance: CEFUROXIME
  2. CEFTRIAXONE. [Suspect]
     Active Substance: CEFTRIAXONE

REACTIONS (2)
  - Stevens-Johnson syndrome [Unknown]
  - Toxic epidermal necrolysis [Unknown]
